FAERS Safety Report 9456215 (Version 1)
Quarter: 2013Q3

REPORT INFORMATION
  Report Type: Spontaneous
  Country: US (occurrence: None)
  Receive Date: 20130812
  Receipt Date: 20130812
  Transmission Date: 20140515
  Serious: No
  Sender: FDA-Public Use
  Company Number: None

PATIENT
  Age: 56 Year
  Sex: Male
  Weight: 93.44 kg

DRUGS (2)
  1. VENLAFAXINE [Suspect]
     Indication: FIBROMYALGIA
     Dates: start: 20130607, end: 20130621
  2. VENLAFAXINE [Suspect]
     Indication: PAIN
     Dates: start: 20130607, end: 20130621

REACTIONS (7)
  - Contusion [None]
  - Hypoaesthesia [None]
  - Disorientation [None]
  - Vision blurred [None]
  - Dry mouth [None]
  - Deafness [None]
  - External ear inflammation [None]
